FAERS Safety Report 17511586 (Version 2)
Quarter: 2020Q1

REPORT INFORMATION
  Report Type: Report from Study
  Country: IE (occurrence: IE)
  Receive Date: 20200306
  Receipt Date: 20200331
  Transmission Date: 20200409
  Serious: Yes (Hospitalization, Other)
  Sender: FDA-Public Use
  Company Number: IE-JNJFOC-20200237157

PATIENT
  Age: 79 Year
  Sex: Male

DRUGS (11)
  1. XGEVA [Concomitant]
     Active Substance: DENOSUMAB
  2. INNOHEP [Concomitant]
     Active Substance: TINZAPARIN SODIUM
     Indication: DEEP VEIN THROMBOSIS
  3. RAMIPRIL. [Concomitant]
     Active Substance: RAMIPRIL
  4. HYDROXOCOBALAMIN [Concomitant]
     Active Substance: HYDROXOCOBALAMIN
  5. ABIRATERONE ACETATE. [Suspect]
     Active Substance: ABIRATERONE ACETATE
     Indication: PROSTATE CANCER
     Route: 048
     Dates: start: 20190106, end: 20200205
  6. AMITRIPTYLINE [Concomitant]
     Active Substance: AMITRIPTYLINE
  7. PREDNISOLONE. [Concomitant]
     Active Substance: PREDNISOLONE
  8. CALCICHEW D3 FORTE [Concomitant]
     Active Substance: CALCIUM\CHOLECALCIFEROL
  9. PROTIUM                            /01263204/ [Concomitant]
  10. FUROSEMIDE. [Concomitant]
     Active Substance: FUROSEMIDE
  11. ATORVASTATIN [Concomitant]
     Active Substance: ATORVASTATIN

REACTIONS (5)
  - Deep vein thrombosis [Recovering/Resolving]
  - Heart rate irregular [Not Recovered/Not Resolved]
  - Hypotension [Not Recovered/Not Resolved]
  - Pain in extremity [Recovered/Resolved]
  - Joint swelling [Not Recovered/Not Resolved]

NARRATIVE: CASE EVENT DATE: 202002
